FAERS Safety Report 6588939-2 (Version None)
Quarter: 2010Q1

REPORT INFORMATION
  Report Type: 
  Country: None (occurrence: None)
  Receive Date: 20100218
  Receipt Date: 20100209
  Transmission Date: 20100710
  Serious: Yes (Other)
  Sender: FDA-Public Use
  Company Number: MT-PFIZER INC-2010017034

PATIENT
  Age: 21 Year
  Sex: Male

DRUGS (2)
  1. CEFPODOXIME PROXETIL [Suspect]
     Indication: OROPHARYNGEAL PAIN
     Dosage: 100 MG, 2X/DAY
     Route: 048
  2. CEFPODOXIME PROXETIL [Suspect]
     Indication: PYREXIA

REACTIONS (5)
  - BURNING SENSATION [None]
  - LIP SWELLING [None]
  - STEVENS-JOHNSON SYNDROME [None]
  - STOMATITIS [None]
  - SWOLLEN TONGUE [None]
